FAERS Safety Report 6617400-1 (Version None)
Quarter: 2010Q1

REPORT INFORMATION
  Report Type: 
  Country: None (occurrence: None)
  Receive Date: 20100307
  Receipt Date: 20100303
  Transmission Date: 20100710
  Serious: Yes (Death)
  Sender: FDA-Public Use
  Company Number: HR-BAYER-201016082GPV

PATIENT
  Age: 80 Year
  Sex: Female
  Weight: 65 kg

DRUGS (5)
  1. AVELOX [Suspect]
     Indication: PNEUMONIA
     Route: 065
  2. FUROSEMID [Concomitant]
  3. POTASSIUM [Concomitant]
     Dates: start: 19970101
  4. CIPROFLOXACIN [Concomitant]
     Indication: PNEUMONIA
  5. CEFTRIAXON [Concomitant]
     Indication: PNEUMONIA

REACTIONS (1)
  - SEPSIS [None]
